FAERS Safety Report 4320628-7 (Version None)
Quarter: 2004Q1

REPORT INFORMATION
  Report Type: 
  Country: None (occurrence: None)
  Receive Date: 20040322
  Receipt Date: 20031219
  Transmission Date: 20041129
  Serious: Yes (Hospitalization, Disabling)
  Sender: FDA-Public Use
  Company Number: CH-BRISTOL-MYERS SQUIBB COMPANY-12462453

PATIENT
  Age: 70 Year
  Sex: Male

DRUGS (10)
  1. MAXIPIME [Suspect]
     Indication: INFECTION
     Route: 042
     Dates: start: 20031127
  2. MADOPAR [Suspect]
     Indication: PARKINSON'S DISEASE
     Dosage: 150 MG/37.5 MG DAILY
     Route: 048
  3. SEROQUEL [Suspect]
     Indication: AGITATION
     Route: 048
  4. BUPRENORPHINE HYDROCHLORIDE [Suspect]
     Dosage: PATCH
     Route: 062
     Dates: end: 20031127
  5. ASPIRIN [Concomitant]
     Dosage: DURATION ^MONTHS^
     Route: 048
  6. ACETAMINOPHEN [Concomitant]
     Indication: PAIN
     Dosage: ^WEEKS^
     Route: 048
  7. VITAMIN B COMPLEX CAP [Concomitant]
     Dosage: ^MONTHS^
     Route: 048
  8. THIAMINE [Concomitant]
     Dosage: ^MONTHS^
     Route: 048
  9. ALENDRONATE SODIUM [Concomitant]
     Indication: OSTEOPOROSIS
     Dosage: ^MONTHS^
     Route: 048
  10. CALCIUM + VITAMIN D [Concomitant]
     Indication: OSTEOPOROSIS
     Dosage: 1000 MG/ 800 UI DAILY FOR ^MONTHS^
     Route: 048

REACTIONS (11)
  - AGITATION [None]
  - CONFUSIONAL STATE [None]
  - COUGH [None]
  - HALLUCINATION, VISUAL [None]
  - HEART RATE INCREASED [None]
  - INSOMNIA [None]
  - ISCHAEMIC STROKE [None]
  - MITRAL VALVE INCOMPETENCE [None]
  - OXYGEN SATURATION DECREASED [None]
  - PERSECUTORY DELUSION [None]
  - PRODUCTIVE COUGH [None]
